FAERS Safety Report 19467151 (Version 1)
Quarter: 2021Q2

REPORT INFORMATION
  Report Type: Spontaneous
  Country: US (occurrence: US)
  Receive Date: 20210625
  Receipt Date: 20210625
  Transmission Date: 20210717
  Serious: Yes (Other)
  Sender: FDA-Public Use
  Company Number: None

PATIENT
  Age: 52 Year
  Sex: Female
  Weight: 96.3 kg

DRUGS (1)
  1. NP THYROID [Suspect]
     Active Substance: LEVOTHYROXINE\LIOTHYRONINE
     Indication: HYPERTHYROIDISM
     Dates: start: 20100330

REACTIONS (4)
  - Weight increased [None]
  - Peripheral swelling [None]
  - Gait disturbance [None]
  - Fatigue [None]

NARRATIVE: CASE EVENT DATE: 20210501
